FAERS Safety Report 4727432-6 (Version None)
Quarter: 2005Q3

REPORT INFORMATION
  Report Type: 
  Country: None (occurrence: None)
  Receive Date: 20050725
  Receipt Date: 20050725
  Transmission Date: 20060218
  Serious: No
  Sender: FDA-Public Use
  Company Number: None

PATIENT
  Age: 43 Year
  Sex: Female

DRUGS (11)
  1. ROSUVASTATIN    5MG    AZTRA [Suspect]
     Indication: HIGH DENSITY LIPOPROTEIN DECREASED
     Dosage: 5MG  DAILY ORAL
     Route: 048
     Dates: start: 20050504, end: 20050522
  2. ROSUVASTATIN    5MG    AZTRA [Suspect]
     Indication: HYPERLIPIDAEMIA
     Dosage: 5MG  DAILY ORAL
     Route: 048
     Dates: start: 20050504, end: 20050522
  3. LOPID [Concomitant]
  4. WELCHOL [Concomitant]
  5. LISINOPRIL [Concomitant]
  6. AVANDIA [Concomitant]
  7. GLUCOPHAGE XR [Concomitant]
  8. INDOMETHACIN [Concomitant]
  9. GABAPENTIN [Concomitant]
  10. ACYCLOVIR [Concomitant]
  11. GLUCOTROL XL [Concomitant]

REACTIONS (4)
  - DRUG INTOLERANCE [None]
  - FAECES DISCOLOURED [None]
  - MUSCULAR WEAKNESS [None]
  - MYALGIA [None]
